FAERS Safety Report 6159606-4 (Version None)
Quarter: 2009Q2

REPORT INFORMATION
  Report Type: 
  Country: None (occurrence: None)
  Receive Date: 20090420
  Receipt Date: 20090409
  Transmission Date: 20091009
  Serious: Yes (Other)
  Sender: FDA-Public Use
  Company Number: US-JNJFOC-20090104006

PATIENT
  Sex: Male
  Weight: 59 kg

DRUGS (3)
  1. REMICADE [Suspect]
     Indication: CROHN'S DISEASE
     Route: 042
  2. PENTASA [Concomitant]
  3. PRILOSEC [Concomitant]

REACTIONS (2)
  - INFECTIOUS MONONUCLEOSIS [None]
  - POST STREPTOCOCCAL GLOMERULONEPHRITIS [None]
